FAERS Safety Report 10072142 (Version 1)
Quarter: 2014Q2

REPORT INFORMATION
  Report Type: Spontaneous
  Country: US (occurrence: None)
  Receive Date: 20140410
  Receipt Date: 20140410
  Transmission Date: 20141212
  Serious: Yes (Other)
  Sender: FDA-Public Use
  Company Number: None

PATIENT
  Age: 58 Year
  Sex: Male
  Weight: 99.79 kg

DRUGS (1)
  1. NABUMETONE [Suspect]
     Indication: MUSCLE STRAIN
     Dosage: 1 PILL
     Route: 048
     Dates: start: 20140404, end: 20140409

REACTIONS (2)
  - Rash [None]
  - Rash [None]
